FAERS Safety Report 7093236-5 (Version None)
Quarter: 2010Q4

REPORT INFORMATION
  Report Type: 
  Country: None (occurrence: None)
  Receive Date: 20101110
  Receipt Date: 20101029
  Transmission Date: 20110411
  Serious: Yes (Hospitalization)
  Sender: FDA-Public Use
  Company Number: DE-BAYER-201044723GPV

PATIENT
  Age: 67 Year
  Sex: Male
  Weight: 69 kg

DRUGS (1)
  1. NEXAVAR [Suspect]
     Indication: THYROID CANCER METASTATIC
     Dosage: NEXAVAR 200/SORAFENIB DOSE TEXT 2-0-2
     Route: 048
     Dates: start: 20091101, end: 20100821

REACTIONS (1)
  - PANCREATITIS [None]
